FAERS Safety Report 21743511 (Version 1)
Quarter: 2022Q4

REPORT INFORMATION
  Report Type: Report from Study
  Country: US (occurrence: US)
  Receive Date: 20221217
  Receipt Date: 20221217
  Transmission Date: 20230112
  Serious: Yes (Other)
  Sender: FDA-Public Use
  Company Number: US-002147023-NVSC2022US287537

PATIENT
  Sex: Male

DRUGS (1)
  1. COSENTYX [Suspect]
     Active Substance: SECUKINUMAB
     Indication: Psoriatic arthropathy
     Dosage: 300 MG, QMO (Q 28 DAYS)
     Route: 058

REACTIONS (4)
  - Atrioventricular block first degree [Unknown]
  - Bradycardia [Unknown]
  - Psoriatic arthropathy [Unknown]
  - Drug effect less than expected [Unknown]
